FAERS Safety Report 9254572 (Version 1)
Quarter: 2013Q2

REPORT INFORMATION
  Report Type: Spontaneous
  Country: US (occurrence: None)
  Receive Date: 20130422
  Receipt Date: 20130422
  Transmission Date: 20140414
  Serious: Yes (Other)
  Sender: FDA-Public Use
  Company Number: None

PATIENT
  Age: 67 Year
  Sex: Male
  Weight: 127.01 kg

DRUGS (1)
  1. FLAGYL [Suspect]
     Route: 048
     Dates: start: 20071101, end: 20071101

REACTIONS (2)
  - Pruritus [None]
  - Discomfort [None]
